FAERS Safety Report 18301526 (Version 1)
Quarter: 2020Q3

REPORT INFORMATION
  Report Type: Spontaneous
  Country: US (occurrence: US)
  Receive Date: 20200923
  Receipt Date: 20200923
  Transmission Date: 20201103
  Serious: No
  Sender: FDA-Public Use
  Company Number: US-RECKITT BENCKISER HEALTHCARE INT LIMITED-RB-87936-2019

PATIENT
  Age: 51 Year
  Sex: Female

DRUGS (1)
  1. MUCINEX MAXIMUM STRENGTH [Suspect]
     Active Substance: GUAIFENESIN
     Indication: RESPIRATORY TRACT CONGESTION
     Dosage: 4 DOSAGE FORM, QD
     Route: 065
     Dates: start: 20190620, end: 20190713

REACTIONS (2)
  - Overdose [Unknown]
  - Drug ineffective [Recovered/Resolved]
